FAERS Safety Report 8220814 (Version 4)
Quarter: 2012Q4

REPORT INFORMATION
  Report Type: 
  Country: AU (occurrence: AU)
  Receive Date: 20111102
  Receipt Date: 20120828
  Transmission Date: 20130627
  Serious: Yes (Other)
  Sender: FDA-Public Use
  Company Number: PHHY2011AU94516

PATIENT
  Age: 49 None
  Sex: Female

DRUGS (4)
  1. GLIVEC [Suspect]
     Indication: CHRONIC MYELOID LEUKAEMIA
     Dosage: 400 mg, BID
     Route: 048
     Dates: start: 20110922
  2. GLIVEC [Suspect]
     Dosage: 400 mg, daily
     Route: 048
     Dates: start: 201109
  3. GLIVEC [Suspect]
     Dosage: 400 mg, daily
     Route: 048
     Dates: start: 201110, end: 20120522
  4. INSULIN [Concomitant]
     Dosage: UNK
     Route: 058

REACTIONS (8)
  - Visual impairment [Recovering/Resolving]
  - Retinal haemorrhage [Unknown]
  - Periorbital oedema [Recovered/Resolved]
  - Generalised oedema [Unknown]
  - Rash [Recovering/Resolving]
  - Muscle spasms [Recovered/Resolved]
  - Fluid retention [Recovering/Resolving]
  - Alopecia [Recovering/Resolving]
